FAERS Safety Report 13166220 (Version 1)
Quarter: 2017Q1

REPORT INFORMATION
  Report Type: Spontaneous
  Country: JP (occurrence: JP)
  Receive Date: 20170131
  Receipt Date: 20170131
  Transmission Date: 20170428
  Serious: Yes (Life-Threatening, Hospitalization)
  Sender: FDA-Public Use
  Company Number: JP-ROCHE-1885550

PATIENT
  Age: 16 Month
  Sex: Female

DRUGS (6)
  1. CEFTRIAXONE. [Suspect]
     Active Substance: CEFTRIAXONE
     Indication: MENINGITIS PNEUMOCOCCAL
     Dosage: 120 MG/KG/DAY/2 DIVIDED DOSES
     Route: 065
  2. MEROPENEM. [Suspect]
     Active Substance: MEROPENEM
     Indication: MENINGITIS PNEUMOCOCCAL
     Dosage: 140 MG/KG/DAY/4 DIVIDED DOSES
     Route: 065
  3. VANCOMYCIN [Suspect]
     Active Substance: VANCOMYCIN
     Indication: MENINGITIS PNEUMOCOCCAL
     Route: 065
  4. BETAMIPRON/PANIPENEM [Suspect]
     Active Substance: BETAMIPRON\PANIPENEM
     Indication: MENINGITIS PNEUMOCOCCAL
     Dosage: 110 MG/KG/DAY/3 DIVIDED DOSES
     Route: 065
  5. CEFTRIAXONE. [Suspect]
     Active Substance: CEFTRIAXONE
     Indication: MENINGITIS PNEUMOCOCCAL
     Dosage: 120 MG/KG/DAY/2 DIVIDED DOSES
     Route: 065
  6. MEROPENEM. [Suspect]
     Active Substance: MEROPENEM
     Indication: MENINGITIS PNEUMOCOCCAL
     Dosage: 140 MG/KG/DAY/4 DIVIDED DOSES
     Route: 065

REACTIONS (2)
  - Drug ineffective [Unknown]
  - Meningitis [Unknown]
